FAERS Safety Report 4663141-X (Version None)
Quarter: 2005Q2

REPORT INFORMATION
  Report Type: 
  Country: None (occurrence: None)
  Receive Date: 20050513
  Receipt Date: 20050505
  Transmission Date: 20051028
  Serious: Yes (Life-Threatening, Hospitalization, Other)
  Sender: FDA-Public Use
  Company Number: 0500052EN0020P

PATIENT
  Age: 8 Year
  Sex: Female
  Weight: 25 kg

DRUGS (5)
  1. ONCASPAR [Suspect]
     Indication: ACUTE LYMPHOCYTIC LEUKAEMIA
     Dosage: 2500 IU IM
     Route: 030
     Dates: start: 20010625, end: 20010625
  2. DOXORUBICIN HCL [Suspect]
     Indication: ACUTE LYMPHOCYTIC LEUKAEMIA
     Dosage: 25 MG IV QWEEK (3 DOSES)
     Dates: start: 20010622, end: 20010706
  3. DEXAMETHASONE [Suspect]
     Indication: ACUTE LYMPHOCYTIC LEUKAEMIA
     Dosage: 10 MG PO QD FOR 7 DAYS
     Route: 048
     Dates: start: 20010622, end: 20010628
  4. DEXAMETHASONE [Suspect]
     Indication: ACUTE LYMPHOCYTIC LEUKAEMIA
     Dosage: 10 MG PO QD FOR 7 DAYS
     Route: 048
     Dates: start: 20010706, end: 20010712
  5. VINCRISTINE [Suspect]
     Indication: ACUTE LYMPHOCYTIC LEUKAEMIA
     Dosage: 1.5 MG IV QWEEK
     Dates: start: 20010622, end: 20010706

REACTIONS (5)
  - FEBRILE NEUTROPENIA [None]
  - HYPOTENSION [None]
  - PALLOR [None]
  - PANCREATITIS [None]
  - THERAPY NON-RESPONDER [None]
